FAERS Safety Report 24225188 (Version 1)
Quarter: 2024Q3

REPORT INFORMATION
  Report Type: Spontaneous
  Country: JP (occurrence: JP)
  Receive Date: 20240820
  Receipt Date: 20240820
  Transmission Date: 20241016
  Serious: Yes (Other)
  Sender: NOVO NORDISK
  Company Number: JP-NOVOPROD-1267614

PATIENT
  Age: 77 Year
  Sex: Male
  Weight: 67 kg

DRUGS (1)
  1. TRESIBA [Suspect]
     Active Substance: INSULIN DEGLUDEC
     Indication: Diabetes mellitus
     Dosage: 3 IU, QD
     Route: 058

REACTIONS (12)
  - Large intestine polyp [Recovered/Resolved]
  - Taste disorder [Unknown]
  - Blood albumin decreased [Unknown]
  - Feeding disorder [Unknown]
  - Anaemia [Unknown]
  - Gastritis [Unknown]
  - Gastrooesophageal reflux disease [Unknown]
  - Diverticulum [Unknown]
  - Liver disorder [Unknown]
  - Weight decreased [Unknown]
  - Injection site pain [Unknown]
  - Hyperglycaemia [Unknown]
